FAERS Safety Report 12683064 (Version 1)
Quarter: 2016Q3

REPORT INFORMATION
  Report Type: Spontaneous
  Country: US (occurrence: US)
  Receive Date: 20160825
  Receipt Date: 20160825
  Transmission Date: 20161109
  Serious: No
  Sender: FDA-Public Use
  Company Number: US-BAYER-2016-164953

PATIENT
  Age: 77 Year
  Sex: Female
  Weight: 81.63 kg

DRUGS (2)
  1. METFORMIN [Concomitant]
     Active Substance: METFORMIN HYDROCHLORIDE
  2. MIRALAX [Suspect]
     Active Substance: POLYETHYLENE GLYCOL 3350
     Dosage: 1 DF, UNK
     Route: 048
     Dates: start: 2014

REACTIONS (2)
  - Expired product administered [None]
  - Product use issue [None]

NARRATIVE: CASE EVENT DATE: 2014
